FAERS Safety Report 9351467 (Version 1)
Quarter: 2013Q2

REPORT INFORMATION
  Report Type: Spontaneous
  Country: US (occurrence: US)
  Receive Date: 20130617
  Receipt Date: 20130617
  Transmission Date: 20140414
  Serious: Yes (Hospitalization)
  Sender: FDA-Public Use
  Company Number: US-B.I. PHARMACEUTICALS,INC./RIDGEFIELD-2013-BI-16869BP

PATIENT
  Age: 71 Year
  Sex: Male

DRUGS (4)
  1. PRADAXA [Suspect]
     Indication: ATRIAL FIBRILLATION
     Dosage: 300 MG
     Route: 048
     Dates: start: 201305, end: 201305
  2. COREG [Suspect]
  3. DILTIAZEM EXTENDED-RELEASE [Concomitant]
     Indication: ATRIAL FIBRILLATION
     Dosage: 240 MG
     Route: 048
     Dates: start: 2013, end: 201305
  4. VERAPAMIL [Concomitant]

REACTIONS (2)
  - Rash generalised [Recovered/Resolved]
  - Tachycardia [Recovered/Resolved]
